FAERS Safety Report 5500032-6 (Version None)
Quarter: 2007Q4

REPORT INFORMATION
  Report Type: 
  Country: None (occurrence: None)
  Receive Date: 20071026
  Receipt Date: 20071017
  Transmission Date: 20080405
  Serious: Yes (Death, Hospitalization)
  Sender: FDA-Public Use
  Company Number: JP-MERCK-0710USA02992

PATIENT
  Age: 71 Year
  Sex: Male

DRUGS (7)
  1. DECADRON [Suspect]
     Indication: PLASMACYTOMA
     Route: 048
     Dates: start: 20020101
  2. DECADRON [Suspect]
     Route: 048
     Dates: start: 20040101, end: 20050101
  3. DECADRON [Suspect]
     Route: 048
     Dates: start: 20060501
  4. ONCOVIN [Concomitant]
     Indication: PLASMACYTOMA
     Route: 042
     Dates: start: 20020101
  5. ADRIAMYCIN PFS [Concomitant]
     Indication: PLASMACYTOMA
     Route: 041
     Dates: start: 20020101
  6. THALIDOMIDE [Concomitant]
     Indication: MULTIPLE MYELOMA
     Route: 065
     Dates: start: 20040101
  7. THALIDOMIDE [Concomitant]
     Indication: PLASMACYTOMA
     Route: 065
     Dates: start: 20040101

REACTIONS (5)
  - BLOOD AMYLASE INCREASED [None]
  - CUSHINGOID [None]
  - DRUG INEFFECTIVE [None]
  - MULTIPLE MYELOMA [None]
  - PLASMACYTOMA [None]
